FAERS Safety Report 9105294 (Version 1)
Quarter: 2013Q1

REPORT INFORMATION
  Report Type: Spontaneous
  Country: US (occurrence: US)
  Receive Date: 20130220
  Receipt Date: 20130220
  Transmission Date: 20140127
  Serious: Yes (Hospitalization)
  Sender: FDA-Public Use
  Company Number: US-GLAXOSMITHKLINE-A1012682A

PATIENT
  Age: 46 Year
  Sex: Female

DRUGS (2)
  1. SORIATANE [Suspect]
     Indication: RASH
     Dosage: 25MG PER DAY
     Route: 048
     Dates: start: 20130128, end: 20130131
  2. SYNTHROID [Concomitant]

REACTIONS (20)
  - Blindness [Unknown]
  - Pruritus generalised [Unknown]
  - Headache [Recovered/Resolved]
  - Dizziness [Recovered/Resolved]
  - Visual impairment [Recovered/Resolved]
  - Myalgia [Recovered/Resolved]
  - Hypersomnia [Unknown]
  - Urticaria [Unknown]
  - Chest pain [Unknown]
  - Lip swelling [Unknown]
  - Swelling face [Unknown]
  - Muscle swelling [Unknown]
  - Brain oedema [Unknown]
  - Chapped lips [Unknown]
  - Headache [Unknown]
  - Tremor [Not Recovered/Not Resolved]
  - Blood cholesterol abnormal [Unknown]
  - Dyspnoea [Not Recovered/Not Resolved]
  - Pericarditis [Unknown]
  - Chest discomfort [Not Recovered/Not Resolved]
